FAERS Safety Report 6081519-7 (Version None)
Quarter: 2009Q1

REPORT INFORMATION
  Report Type: 
  Country: None (occurrence: None)
  Receive Date: 20090218
  Receipt Date: 20090211
  Transmission Date: 20090719
  Serious: Yes (Death)
  Sender: FDA-Public Use
  Company Number: ES-CELGENEUS-144-21880-09020668

PATIENT
  Sex: Male

DRUGS (1)
  1. REVLIMID [Suspect]
     Indication: MULTIPLE MYELOMA
     Route: 048
     Dates: start: 20080101

REACTIONS (1)
  - INFECTION [None]
